FAERS Safety Report 5163480-2 (Version None)
Quarter: 2006Q4

REPORT INFORMATION
  Report Type: 
  Country: None (occurrence: None)
  Receive Date: 20061124
  Receipt Date: 20061113
  Transmission Date: 20070319
  Serious: Yes (Other)
  Sender: FDA-Public Use
  Company Number: 2006135210

PATIENT
  Age: 17 Year
  Sex: Male

DRUGS (1)
  1. GEODON [Suspect]
     Dosage: (2 IN 1 D)

REACTIONS (4)
  - DRUG DOSE OMISSION [None]
  - HOMICIDE [None]
  - INTENTIONAL DRUG MISUSE [None]
  - MOOD ALTERED [None]
